FAERS Safety Report 7568792-0 (Version None)
Quarter: 2011Q2

REPORT INFORMATION
  Report Type: 
  Country: None (occurrence: None)
  Receive Date: 20110623
  Receipt Date: 20110609
  Transmission Date: 20111010
  Serious: Yes (Other)
  Sender: FDA-Public Use
  Company Number: CH-JNJFOC-20110609316

PATIENT
  Age: 33 Year
  Sex: Male
  Weight: 89 kg

DRUGS (2)
  1. RISPERDAL CONSTA [Suspect]
     Indication: PSYCHOTIC DISORDER
     Route: 030
     Dates: start: 20100429, end: 20110428
  2. RISPERDAL CONSTA [Suspect]
     Indication: SCHIZOPHRENIA
     Route: 030
     Dates: start: 20100429, end: 20110428

REACTIONS (1)
  - ACCELERATED IDIOVENTRICULAR RHYTHM [None]
